FAERS Safety Report 9986050 (Version 2)
Quarter: 2014Q1

REPORT INFORMATION
  Report Type: Spontaneous
  Country: KW (occurrence: KW)
  Receive Date: 20140307
  Receipt Date: 20140307
  Transmission Date: 20141002
  Serious: Yes (Hospitalization)
  Sender: FDA-Public Use
  Company Number: KW-VERTEX PHARMACEUTICALS INC-2013-010741

PATIENT
  Age: 48 Year
  Sex: Female

DRUGS (4)
  1. INCIVO [Suspect]
     Indication: CHRONIC HEPATITIS C
     Dosage: 750 MG, TID
     Route: 048
     Dates: start: 20130615, end: 20130924
  2. INCIVO [Suspect]
     Indication: HEPATITIS C
  3. PEGINTERFERON ALFA 2A [Suspect]
     Indication: CHRONIC HEPATITIS C
     Dosage: DOSAGE FORM: UNSPECIFIED
     Route: 058
     Dates: start: 20130615
  4. RIBAVIRIN [Suspect]
     Indication: CHRONIC HEPATITIS C
     Dosage: DOSAGE FORM: UNSPECIFIED, DOSE REPORTED AS 1200 (UNIT NOT PROVIDED)
     Route: 048
     Dates: start: 20130615

REACTIONS (2)
  - Oesophageal varices haemorrhage [Unknown]
  - Anaemia [Unknown]
